FAERS Safety Report 18614997 (Version 6)
Quarter: 2022Q3

REPORT INFORMATION
  Report Type: Report from Study
  Country: US (occurrence: US)
  Receive Date: 20201214
  Receipt Date: 20220826
  Transmission Date: 20221027
  Serious: Yes (Hospitalization, Other)
  Sender: FDA-Public Use
  Company Number: US-SHIRE-US201844848

PATIENT
  Age: 59 Year
  Sex: Female
  Weight: 43.99 kg

DRUGS (23)
  1. TEDUGLUTIDE [Suspect]
     Active Substance: TEDUGLUTIDE
     Indication: Short-bowel syndrome
     Dosage: 2 MILLIGRAM, QD
     Route: 042
     Dates: start: 20130404, end: 20180227
  2. TEDUGLUTIDE [Suspect]
     Active Substance: TEDUGLUTIDE
     Indication: Short-bowel syndrome
     Dosage: 2 MILLIGRAM, QD
     Route: 042
     Dates: start: 20130404, end: 20180227
  3. TEDUGLUTIDE [Suspect]
     Active Substance: TEDUGLUTIDE
     Indication: Short-bowel syndrome
     Dosage: 2 MILLIGRAM, QD
     Route: 042
     Dates: start: 20130404, end: 20180227
  4. TEDUGLUTIDE [Suspect]
     Active Substance: TEDUGLUTIDE
     Indication: Short-bowel syndrome
     Dosage: 2 MILLIGRAM, QD
     Route: 042
     Dates: start: 20130404, end: 20180227
  5. TEDUGLUTIDE [Suspect]
     Active Substance: TEDUGLUTIDE
     Dosage: 2 MILLIGRAM, 4/WEEK
     Route: 042
     Dates: start: 20171206
  6. TEDUGLUTIDE [Suspect]
     Active Substance: TEDUGLUTIDE
     Dosage: 2 MILLIGRAM, 4/WEEK
     Route: 042
     Dates: start: 20171206
  7. TEDUGLUTIDE [Suspect]
     Active Substance: TEDUGLUTIDE
     Dosage: 2 MILLIGRAM, 4/WEEK
     Route: 042
     Dates: start: 20171206
  8. TEDUGLUTIDE [Suspect]
     Active Substance: TEDUGLUTIDE
     Dosage: 2 MILLIGRAM, 4/WEEK
     Route: 042
     Dates: start: 20171206
  9. CREON [Concomitant]
     Active Substance: PANCRELIPASE AMYLASE\PANCRELIPASE LIPASE\PANCRELIPASE PROTEASE
     Indication: Malabsorption
     Route: 065
  10. CARVEDILOL [Concomitant]
     Active Substance: CARVEDILOL
     Indication: Cardiomyopathy
     Route: 065
  11. PAREGORIC [Concomitant]
     Active Substance: MORPHINE
     Indication: Ileostomy
     Route: 065
  12. DAPAGLIFLOZIN [Concomitant]
     Active Substance: DAPAGLIFLOZIN
     Indication: Diabetes mellitus
     Route: 065
  13. FORTEO [Concomitant]
     Active Substance: TERIPARATIDE
     Indication: Osteoporosis
     Dosage: 600 MILLIGRAM, QD
     Route: 048
     Dates: start: 20170823
  14. FORTEO [Concomitant]
     Active Substance: TERIPARATIDE
     Dosage: 600 MICROGRAM, QD
     Route: 058
     Dates: start: 20170823
  15. FORTEO [Concomitant]
     Active Substance: TERIPARATIDE
     Dosage: 20 MICROGRAM, QD
     Route: 058
     Dates: start: 20220709
  16. SPIRONOLACTONE [Concomitant]
     Active Substance: SPIRONOLACTONE
     Indication: Cardiomyopathy
     Dosage: 25 MILLIGRAM, QD
     Route: 048
     Dates: start: 20200930
  17. SPIRONOLACTONE [Concomitant]
     Active Substance: SPIRONOLACTONE
     Dosage: 25 MILLIGRAM, QD
     Route: 048
     Dates: start: 20140930
  18. SELENIUM [Concomitant]
     Active Substance: SELENIUM
     Indication: Mineral deficiency
     Dosage: 200 MILLIGRAM, QD
     Route: 048
     Dates: start: 20100908
  19. PAREGORIC [MORPHINE] [Concomitant]
     Indication: Ileostomy
     Dosage: 2 MILLIGRAM
     Route: 048
  20. TRADJENTA [Concomitant]
     Active Substance: LINAGLIPTIN
     Indication: Diabetes mellitus
     Dosage: 5 MILLIGRAM, QD
     Route: 048
     Dates: start: 20201119
  21. AUGMENTIN [Concomitant]
     Active Substance: AMOXICILLIN\CLAVULANATE POTASSIUM
     Indication: Gastroenteritis
     Dosage: 500 MILLIGRAM, Q12H
     Route: 048
     Dates: start: 20220709, end: 20220714
  22. NESINA [Concomitant]
     Active Substance: ALOGLIPTIN BENZOATE
     Indication: Diabetes mellitus
     Dosage: 6.25 MILLIGRAM, QD
     Route: 048
     Dates: start: 20220709
  23. ACETAMINOPHEN [Concomitant]
     Active Substance: ACETAMINOPHEN
     Indication: Pain
     Dosage: 325 MILLIGRAM
     Route: 048
     Dates: start: 20220709, end: 20220713

REACTIONS (9)
  - Diarrhoea [Recovered/Resolved]
  - Dehydration [Recovered/Resolved]
  - Hypovolaemia [Recovered/Resolved]
  - Hypokalaemia [Recovered/Resolved]
  - Hypophosphataemia [Recovered/Resolved]
  - Leukocytosis [Recovered/Resolved]
  - Pancreatitis acute [Recovered/Resolved]
  - Abdominal pain [Recovered/Resolved]
  - Abdominal pain upper [Recovered/Resolved]

NARRATIVE: CASE EVENT DATE: 20171101
